FAERS Safety Report 12348328 (Version 3)
Quarter: 2016Q2

REPORT INFORMATION
  Report Type: Report from Study
  Country: FR (occurrence: FR)
  Receive Date: 20160509
  Receipt Date: 20160519
  Transmission Date: 20160815
  Serious: Yes (Life-Threatening, Hospitalization, Other)
  Sender: FDA-Public Use
  Company Number: FR-JNJFOC-20151101884

PATIENT
  Age: 30 Year
  Sex: Male
  Weight: 52 kg

DRUGS (37)
  1. DELTYBA [Interacting]
     Active Substance: DELAMANID
     Indication: TUBERCULOSIS
     Route: 048
  2. GRANUPAS [Suspect]
     Active Substance: AMINOSALICYLIC ACID
     Indication: TUBERCULOSIS
     Route: 048
     Dates: start: 20150828
  3. IMIPENEM [Suspect]
     Active Substance: IMIPENEM
     Indication: TUBERCULOSIS
     Route: 065
  4. IZILOX [Suspect]
     Active Substance: MOXIFLOXACIN HYDROCHLORIDE
     Indication: PULMONARY TUBERCULOSIS
     Route: 065
     Dates: end: 201509
  5. LYSANXIA [Concomitant]
     Active Substance: PRAZEPAM
     Indication: ANXIETY
     Dosage: ONLY IF NEEDED
     Route: 048
  6. TIORFAN [Concomitant]
     Active Substance: RACECADOTRIL
     Dosage: ONLY IF NEEDED
     Route: 065
  7. TARDYFERON [Concomitant]
     Active Substance: FERROUS SULFATE\FOLIC ACID
     Route: 065
  8. DELTYBA [Interacting]
     Active Substance: DELAMANID
     Indication: TUBERCULOSIS
     Route: 048
  9. LYSANXIA [Concomitant]
     Active Substance: PRAZEPAM
     Indication: ANXIETY
     Dosage: 10 DROPS PER DAY
     Route: 048
     Dates: start: 20151006
  10. PRIMPERAN [Concomitant]
     Active Substance: METOCLOPRAMIDE HYDROCHLORIDE
     Dosage: IF NEEDED
     Route: 065
  11. VITAMIN B1 AND B6 [Concomitant]
     Active Substance: PYRIDOXINE HYDROCHLORIDE\THIAMINE HYDROCHLORIDE
     Dosage: B1 35MG, B6 250MG ONE TABLET PER DAY
     Route: 065
  12. TMC207 [Suspect]
     Active Substance: BEDAQUILINE
     Indication: PULMONARY TUBERCULOSIS
     Route: 048
     Dates: start: 20150828, end: 20160420
  13. MIANSERINE [Interacting]
     Active Substance: MIANSERIN HYDROCHLORIDE
     Indication: PRODUCT USED FOR UNKNOWN INDICATION
     Dosage: (50 MG TAB)
     Route: 048
     Dates: start: 20160408
  14. PHLOROGLUCINOL [Concomitant]
     Active Substance: PHLOROGLUCINOL
     Dosage: IF NEEDED
     Route: 065
  15. NICOBION [Concomitant]
     Active Substance: NIACINAMIDE
     Route: 065
  16. VITAMIN B1 AND B6 [Concomitant]
     Active Substance: PYRIDOXINE HYDROCHLORIDE\THIAMINE HYDROCHLORIDE
     Route: 065
  17. ESOMEPRAZOLE [Concomitant]
     Active Substance: ESOMEPRAZOLE
     Route: 065
  18. AMIKACIN [Suspect]
     Active Substance: AMIKACIN
     Indication: TUBERCULOSIS
     Route: 042
     Dates: start: 20150828
  19. AMOXICILLIN W/CLAVULANIC ACID [Suspect]
     Active Substance: AMOXICILLIN\CLAVULANIC ACID
     Indication: TUBERCULOSIS
     Route: 065
  20. MAGNESIUM [Concomitant]
     Active Substance: MAGNESIUM
     Route: 065
  21. PRIMPERAN [Concomitant]
     Active Substance: METOCLOPRAMIDE HYDROCHLORIDE
     Route: 065
  22. DELTYBA [Interacting]
     Active Substance: DELAMANID
     Indication: TUBERCULOSIS
     Dosage: (50 MG TAB)
     Route: 048
     Dates: start: 20151002, end: 20160420
  23. AMIKACIN [Suspect]
     Active Substance: AMIKACIN
     Indication: TUBERCULOSIS
     Dosage: AMIKACIN 1/2
     Route: 042
     Dates: start: 20160108
  24. TIENAM [Suspect]
     Active Substance: CILASTATIN SODIUM\IMIPENEM
     Indication: PULMONARY TUBERCULOSIS
     Route: 042
     Dates: start: 20150922
  25. LAMPRENE [Interacting]
     Active Substance: CLOFAZIMINE
     Indication: TUBERCULOSIS
     Route: 048
     Dates: start: 20150912, end: 20160420
  26. LINEZOLID. [Suspect]
     Active Substance: LINEZOLID
     Indication: PULMONARY TUBERCULOSIS
     Route: 065
     Dates: end: 201509
  27. DELTYBA [Interacting]
     Active Substance: DELAMANID
     Indication: TUBERCULOSIS
     Route: 048
  28. DELTYBA [Interacting]
     Active Substance: DELAMANID
     Indication: TUBERCULOSIS
     Dosage: 4 TABLETS
     Route: 048
  29. AMIKACIN [Suspect]
     Active Substance: AMIKACIN
     Indication: TUBERCULOSIS
     Route: 042
  30. CYCLOSERINE. [Suspect]
     Active Substance: CYCLOSERINE
     Indication: TUBERCULOSIS
     Route: 048
     Dates: start: 20150828
  31. UVEDOSE [Concomitant]
     Active Substance: CHOLECALCIFEROL
     Indication: TUBERCULOSIS
     Dosage: 100 000 IU/14 DAYS
     Route: 065
  32. DAFALGAN [Concomitant]
     Active Substance: ACETAMINOPHEN
     Dosage: ONLY IF NEEDED
     Route: 065
  33. LYSANXIA [Concomitant]
     Active Substance: PRAZEPAM
     Indication: ANXIETY
     Dosage: AS NEEDED
     Route: 048
  34. PRIMPERAN [Concomitant]
     Active Substance: METOCLOPRAMIDE HYDROCHLORIDE
     Route: 065
  35. PARA-AMINOSALICYLIC ACID [Suspect]
     Active Substance: AMINOSALICYLIC ACID
     Indication: TUBERCULOSIS
     Dosage: (50 MG TAB)
     Route: 065
     Dates: start: 20150828
  36. PHLOROGLUCINOL [Concomitant]
     Active Substance: PHLOROGLUCINOL
     Dosage: IF NEEDED
     Route: 065
  37. DIFFU-K [Concomitant]
     Active Substance: POTASSIUM CHLORIDE
     Route: 065

REACTIONS (14)
  - Hyperthyroidism [Unknown]
  - Tuberculosis [Unknown]
  - Aspartate aminotransferase increased [Unknown]
  - Fibroma [Recovered/Resolved]
  - Benign soft tissue neoplasm [Recovered/Resolved]
  - Ageusia [Recovered/Resolved]
  - Alanine aminotransferase increased [Unknown]
  - Abdominal pain [Not Recovered/Not Resolved]
  - Cardiac neoplasm unspecified [Recovered/Resolved]
  - Syncope [Unknown]
  - Drug interaction [Unknown]
  - Dizziness [Unknown]
  - Tinnitus [Not Recovered/Not Resolved]
  - Electrocardiogram QT prolonged [Unknown]

NARRATIVE: CASE EVENT DATE: 201509
